FAERS Safety Report 16149429 (Version 1)
Quarter: 2019Q2

REPORT INFORMATION
  Report Type: Spontaneous
  Country: US (occurrence: US)
  Receive Date: 20190227
  Receipt Date: 20190227
  Transmission Date: 20190711
  Serious: Yes (Other)
  Sender: FDA-Public Use
  Company Number: None

PATIENT
  Age: 64 Year
  Sex: Female
  Weight: 68.04 kg

DRUGS (2)
  1. LEVEMIR [Suspect]
     Active Substance: INSULIN DETEMIR
     Dosage: ?          QUANTITY:10-15 UNITS;?
     Route: 058
  2. PERCOCET [Concomitant]
     Active Substance: ACETAMINOPHEN\OXYCODONE HYDROCHLORIDE

REACTIONS (7)
  - Appetite disorder [None]
  - Product odour abnormal [None]
  - Device issue [None]
  - Parosmia [None]
  - Injection site mass [None]
  - Tongue discomfort [None]
  - Taste disorder [None]

NARRATIVE: CASE EVENT DATE: 201901
